FAERS Safety Report 8570896 (Version 3)
Quarter: 2014Q4

REPORT INFORMATION
  Report Type: Spontaneous
  Country: US (occurrence: US)
  Receive Date: 20120521
  Receipt Date: 20141212
  Transmission Date: 20150529
  Serious: Yes (Hospitalization)
  Sender: FDA-Public Use
  Company Number: US-BAYER-2012-049195

PATIENT
  Age: 43 Year
  Sex: Female
  Weight: 79.82 kg

DRUGS (8)
  1. NAPROSYN [Concomitant]
     Active Substance: NAPROXEN
     Dosage: 500 MG, UNK
     Route: 048
     Dates: start: 20060911
  2. MEDROL [METHYLPREDNISOLONE] [Concomitant]
     Dosage: UNK
     Route: 048
     Dates: start: 20060926
  3. CLARITIN [Concomitant]
     Active Substance: LORATADINE
     Indication: MULTIPLE ALLERGIES
     Dosage: 20 DAYS PRIOR TO INJURY
     Route: 048
     Dates: start: 200609
  4. SKELAXIN [Concomitant]
     Active Substance: METAXALONE
     Dosage: 200 MG, UNK
     Route: 048
     Dates: start: 20060911
  5. YASMIN [Suspect]
     Active Substance: DROSPIRENONE\ETHINYL ESTRADIOL
     Indication: CONTRACEPTION
     Dosage: UNK
     Route: 048
     Dates: start: 200206, end: 200609
  6. YASMIN [Suspect]
     Active Substance: DROSPIRENONE\ETHINYL ESTRADIOL
     Indication: DYSMENORRHOEA
  7. ZOLOFT [Concomitant]
     Active Substance: SERTRALINE HYDROCHLORIDE
     Indication: DEPRESSION
     Dosage: UNK
     Route: 048
     Dates: start: 2001, end: 2009
  8. IBUPROFEN. [Concomitant]
     Active Substance: IBUPROFEN
     Dosage: UNK
     Route: 048
     Dates: start: 20060911

REACTIONS (7)
  - Emotional distress [None]
  - Injury [Recovered/Resolved]
  - Pain [Recovered/Resolved]
  - Thrombophlebitis superficial [Recovered/Resolved]
  - Pain [None]
  - General physical health deterioration [None]
  - Anxiety [None]

NARRATIVE: CASE EVENT DATE: 20060929
